FAERS Safety Report 22853057 (Version 6)
Quarter: 2024Q2

REPORT INFORMATION
  Report Type: Spontaneous
  Country: ES (occurrence: ES)
  Receive Date: 20230823
  Receipt Date: 20240510
  Transmission Date: 20240715
  Serious: Yes (Death, Other)
  Sender: FDA-Public Use
  Company Number: ES-BAXTER-2023BAX021834

PATIENT
  Age: 71 Year
  Sex: Female

DRUGS (26)
  1. BENDAMUSTINE HYDROCHLORIDE [Suspect]
     Active Substance: BENDAMUSTINE HYDROCHLORIDE
     Indication: Diffuse large B-cell lymphoma stage IV
     Dosage: UNK UNK, CYCLICAL (3RD LINE, 1 CYCLE, BRIDGE THERAPY)
     Route: 042
  2. DOXORUBICIN [Suspect]
     Active Substance: DOXORUBICIN
     Indication: Diffuse large B-cell lymphoma stage IV
     Dosage: UNK, CYCLICAL (1ST LINE, 6 CYCLES AS A PART OF RCHOP REGIMEN)
     Route: 065
  3. EPIRUBICIN [Suspect]
     Active Substance: EPIRUBICIN
     Indication: Diffuse large B-cell lymphoma stage IV
     Dosage: UNK, CYCLICAL (2ND LINE, 8 CYCLES AS A PART OF EC REGIMEN)
     Route: 050
  4. EPIRUBICIN [Suspect]
     Active Substance: EPIRUBICIN
     Indication: Diffuse large B-cell lymphoma
  5. GENOXAL [Suspect]
     Active Substance: CYCLOPHOSPHAMIDE
     Indication: Diffuse large B-cell lymphoma
     Dosage: UNK, CYCLICAL (1ST LINE, 6 CYCLES AS A PART OF RCHOP REGIMEN)
     Route: 065
  6. GENOXAL [Suspect]
     Active Substance: CYCLOPHOSPHAMIDE
     Indication: Diffuse large B-cell lymphoma stage IV
     Dosage: UNK, CYCLICAL (2ND LINE, 8 CYCLES AS A PART OF EC REGIMEN)
     Route: 065
  7. CYTARABINE [Suspect]
     Active Substance: CYTARABINE
     Indication: Diffuse large B-cell lymphoma stage IV
     Dosage: UNK, CYCLICAL (5TH LINE AS A PART OF R-MTX-ARA-C REGIMEN)
     Route: 065
  8. CYTARABINE [Suspect]
     Active Substance: CYTARABINE
     Indication: Diffuse large B-cell lymphoma
  9. DEXAMETHASONE [Suspect]
     Active Substance: DEXAMETHASONE
     Indication: Diffuse large B-cell lymphoma stage IV
     Dosage: UNK
     Route: 048
  10. DEXAMETHASONE [Suspect]
     Active Substance: DEXAMETHASONE
     Indication: Diffuse large B-cell lymphoma
  11. IMBRUVICA [Suspect]
     Active Substance: IBRUTINIB
     Indication: Diffuse large B-cell lymphoma
     Dosage: UNK, CYCLICAL (6TH LINE, 4 CYCLES)
     Route: 048
  12. IMBRUVICA [Suspect]
     Active Substance: IBRUTINIB
     Indication: Diffuse large B-cell lymphoma stage IV
  13. MOSUNETUZUMAB [Suspect]
     Active Substance: MOSUNETUZUMAB
     Indication: Diffuse large B-cell lymphoma
     Dosage: UNK, CYCLICAL (2ND LINE, 8 CYCLES)
     Route: 050
  14. MOSUNETUZUMAB [Suspect]
     Active Substance: MOSUNETUZUMAB
     Indication: Diffuse large B-cell lymphoma stage IV
  15. METHOTREXATE [Suspect]
     Active Substance: METHOTREXATE
     Indication: Diffuse large B-cell lymphoma
     Dosage: UNK, CYCLICAL (5TH LINE AS A PART OF R-MTX-ARA-C REGIMEN)
     Route: 065
  16. METHOTREXATE [Suspect]
     Active Substance: METHOTREXATE
     Indication: Diffuse large B-cell lymphoma stage IV
  17. PREDNISONE [Suspect]
     Active Substance: PREDNISONE
     Indication: Diffuse large B-cell lymphoma
     Dosage: UNK, CYCLICAL (1ST LINE, 6 CYCLES AS A PART OF RCHOP REGIMEN)
     Route: 065
  18. PREDNISONE [Suspect]
     Active Substance: PREDNISONE
     Indication: Diffuse large B-cell lymphoma stage IV
  19. TRUXIMA [Suspect]
     Active Substance: RITUXIMAB-ABBS
     Indication: Diffuse large B-cell lymphoma
     Dosage: UNK, CYCLICAL (3RD LINE, 1 CYCLE, BRIDGE THERAPY)
     Route: 065
  20. TRUXIMA [Suspect]
     Active Substance: RITUXIMAB-ABBS
     Indication: Diffuse large B-cell lymphoma stage IV
     Dosage: UNK, CYCLICAL (1ST LINE, 6 CYCLES AS A PART OF RCHOP REGIMEN)
     Route: 065
  21. TRUXIMA [Suspect]
     Active Substance: RITUXIMAB-ABBS
     Dosage: UNK, CYCLICAL (5TH LINE AS A PART OF R-MTX-ARA-C REGIMEN)
     Route: 065
  22. TEMODAL [Suspect]
     Active Substance: TEMOZOLOMIDE
     Indication: Diffuse large B-cell lymphoma stage IV
     Dosage: UNK, CYCLICAL (6TH LINE, 4 CYCLES)
     Route: 065
  23. TEMODAL [Suspect]
     Active Substance: TEMOZOLOMIDE
     Indication: Diffuse large B-cell lymphoma
  24. VINCRISTINE SULFATE [Suspect]
     Active Substance: VINCRISTINE SULFATE
     Indication: Diffuse large B-cell lymphoma stage IV
     Dosage: UNK, CYCLICAL (1ST LINE, 6 CYCLES AS A PART OF RCHOP REGIMEN)
     Route: 065
  25. VINCRISTINE SULFATE [Suspect]
     Active Substance: VINCRISTINE SULFATE
     Indication: Diffuse large B-cell lymphoma
  26. CYCLOPHOSPHAMIDE [Suspect]
     Active Substance: CYCLOPHOSPHAMIDE
     Indication: Diffuse large B-cell lymphoma stage IV
     Dosage: UNK (,CYCLIC, 1ST LINE, 6 CYCLES AS A PART OF RCHOP REGIMEN)
     Route: 065

REACTIONS (10)
  - Death [Fatal]
  - Diffuse large B-cell lymphoma [Recovered/Resolved]
  - Vasogenic cerebral oedema [Recovered/Resolved]
  - Diffuse large B-cell lymphoma recurrent [Recovered/Resolved]
  - Malignant neoplasm progression [Recovered/Resolved]
  - Neurological symptom [Unknown]
  - Disease progression [Not Recovered/Not Resolved]
  - Disorientation [Unknown]
  - Therapy partial responder [Unknown]
  - Off label use [Unknown]
